FAERS Safety Report 16687716 (Version 1)
Quarter: 2019Q3

REPORT INFORMATION
  Report Type: Spontaneous
  Country: US (occurrence: US)
  Receive Date: 20190809
  Receipt Date: 20190809
  Transmission Date: 20191004
  Serious: Yes (Other)
  Sender: FDA-Public Use
  Company Number: US-RECKITT BENCKISER HEALTHCARE INT LIMITED-RB-88474-2019

PATIENT
  Age: 18 Year
  Sex: Male

DRUGS (1)
  1. MUCINEX [Suspect]
     Active Substance: GUAIFENESIN
     Indication: DRUG ABUSE
     Dosage: UNK
     Route: 065

REACTIONS (5)
  - Homicide [Unknown]
  - Drug abuse [Unknown]
  - Road traffic accident [Unknown]
  - Theft [Unknown]
  - Drug dependence [Unknown]
